FAERS Safety Report 6988105-2 (Version None)
Quarter: 2010Q3

REPORT INFORMATION
  Report Type: 
  Country: None (occurrence: None)
  Receive Date: 20100916
  Receipt Date: 20100909
  Transmission Date: 20110219
  Serious: Yes (Hospitalization)
  Sender: FDA-Public Use
  Company Number: B0664123A

PATIENT
  Sex: Female
  Weight: 55 kg

DRUGS (12)
  1. VALTREX [Suspect]
     Indication: HERPES ZOSTER
     Dosage: 3000MG PER DAY
     Route: 048
     Dates: start: 20100330, end: 20100401
  2. BLOPRESS [Concomitant]
     Indication: HYPERTENSION
     Dosage: 8MG PER DAY
     Route: 048
     Dates: end: 20100401
  3. BUFFERIN [Concomitant]
     Indication: CEREBRAL INFARCTION
     Route: 048
     Dates: end: 20100401
  4. PARIET [Concomitant]
     Dosage: 10MG PER DAY
     Route: 048
     Dates: end: 20100401
  5. MAGNESIUM OXIDE [Concomitant]
     Dosage: 1320MG PER DAY
     Route: 048
     Dates: end: 20100401
  6. CONSTAN [Concomitant]
     Route: 048
  7. OSTELUC [Concomitant]
     Indication: BACK PAIN
     Dosage: 2IUAX PER DAY
     Route: 048
     Dates: end: 20100401
  8. COBAMAMIDE [Concomitant]
     Route: 048
  9. TERRA-CORTRIL [Concomitant]
     Route: 065
  10. ARASENA-A [Concomitant]
     Route: 065
  11. BENIDIPINE HYDROCHLORIDE [Concomitant]
     Indication: HYPERTENSION
     Dosage: 4MG PER DAY
     Route: 048
     Dates: end: 20100401
  12. NORMAL SALINE [Concomitant]

REACTIONS (7)
  - ASTHENIA [None]
  - CARDIAC HYPERTROPHY [None]
  - DYSARTHRIA [None]
  - DYSSTASIA [None]
  - PLEURAL EFFUSION [None]
  - RENAL DISORDER [None]
  - TUBULOINTERSTITIAL NEPHRITIS [None]
